FAERS Safety Report 9104879 (Version 1)
Quarter: 2013Q1

REPORT INFORMATION
  Report Type: Spontaneous
  Country: MX (occurrence: MX)
  Receive Date: 20130219
  Receipt Date: 20130219
  Transmission Date: 20140127
  Serious: Yes (Other)
  Sender: FDA-Public Use
  Company Number: PHHY2013MX015106

PATIENT
  Age: 86 Year
  Sex: Male

DRUGS (3)
  1. DIOVAN [Suspect]
     Indication: HYPERTENSION
     Dosage: 160 MG, DAILY
     Route: 048
  2. ASPIRIN PROTECT [Concomitant]
     Indication: ARTERIAL OCCLUSIVE DISEASE
     Dosage: 1 UKN, DAILY
  3. IRON SULFATE [Concomitant]
     Indication: EPISTAXIS
     Dosage: UNK UKN, UNK
     Dates: start: 2009, end: 2012

REACTIONS (3)
  - Abasia [Not Recovered/Not Resolved]
  - Arterial occlusive disease [Not Recovered/Not Resolved]
  - Epistaxis [Unknown]
